FAERS Safety Report 16768196 (Version 1)
Quarter: 2019Q4

REPORT INFORMATION
  Report Type: Spontaneous
  Country: US (occurrence: US)
  Receive Date: 20190903
  Receipt Date: 20190903
  Transmission Date: 20200122
  Serious: Yes (Hospitalization)
  Sender: FDA-Public Use
  Company Number: None

PATIENT
  Age: 63 Year
  Sex: Female
  Weight: 92.7 kg

DRUGS (3)
  1. OZEMPIC [Suspect]
     Active Substance: SEMAGLUTIDE
     Indication: DIABETES MELLITUS
     Dosage: ?          QUANTITY:1 INJECTION(S);OTHER FREQUENCY:ONCE A WEEK INJECT;?
     Route: 058
     Dates: start: 20190711, end: 20190829
  2. PROBIOTIC [Concomitant]
     Active Substance: PROBIOTICS NOS
  3. VITAMIN [Concomitant]
     Active Substance: VITAMINS

REACTIONS (9)
  - Nausea [None]
  - Dizziness [None]
  - Diarrhoea [None]
  - Heart rate increased [None]
  - Asthenia [None]
  - Dehydration [None]
  - Weight decreased [None]
  - Flatulence [None]
  - Gait inability [None]

NARRATIVE: CASE EVENT DATE: 20190830
